FAERS Safety Report 4424378-8 (Version None)
Quarter: 2004Q3

REPORT INFORMATION
  Report Type: 
  Country: None (occurrence: None)
  Receive Date: 20040812
  Receipt Date: 20040803
  Transmission Date: 20050211
  Serious: Yes (Hospitalization)
  Sender: FDA-Public Use
  Company Number: US-JNJFOC-20040404968

PATIENT
  Age: 39 Year
  Sex: Female
  Weight: 58.97 kg

DRUGS (7)
  1. TOPAMAX [Suspect]
     Route: 049
  2. TOPAMAX [Suspect]
     Route: 049
  3. TOPAMAX [Suspect]
     Indication: MIGRAINE PROPHYLAXIS
     Route: 049
  4. ZOMIG [Concomitant]
     Dosage: TAKEN AS NEEDED
  5. LEXAPRO [Concomitant]
  6. SEROQUEL [Concomitant]
  7. LITHIUM [Concomitant]

REACTIONS (8)
  - AGGRESSION [None]
  - BIPOLAR DISORDER [None]
  - DRUG DEPENDENCE [None]
  - FEELING COLD [None]
  - HALLUCINATION, AUDITORY [None]
  - MANIA [None]
  - PSYCHOTIC DISORDER [None]
  - TREMOR [None]
